FAERS Safety Report 5549706-1 (Version None)
Quarter: 2007Q4

REPORT INFORMATION
  Report Type: 
  Country: None (occurrence: None)
  Receive Date: 20071212
  Receipt Date: 20071207
  Transmission Date: 20080405
  Serious: Yes (Hospitalization)
  Sender: FDA-Public Use
  Company Number: PHRM2007FR01478

PATIENT
  Age: 30 Year
  Sex: Female

DRUGS (1)
  1. SYNTOCINON [Suspect]
     Indication: ASSISTED DELIVERY
     Dosage: 1 DF, ONCE/SINGLE

REACTIONS (8)
  - ANAPHYLACTOID REACTION [None]
  - ANGIOEDEMA [None]
  - BLOOD PRESSURE DECREASED [None]
  - BLOOD PRESSURE SYSTOLIC INCREASED [None]
  - EYELID OEDEMA [None]
  - LIP OEDEMA [None]
  - TACHYCARDIA [None]
  - URTICARIA [None]
